FAERS Safety Report 7352337-4 (Version None)
Quarter: 2011Q1

REPORT INFORMATION
  Report Type: 
  Country: None (occurrence: None)
  Receive Date: 20110309
  Receipt Date: 20110309
  Transmission Date: 20110831
  Serious: Yes (Hospitalization)
  Sender: FDA-Public Use
  Company Number: None

PATIENT
  Age: 77 Year
  Sex: Male
  Weight: 81.6475 kg

DRUGS (8)
  1. ZETIA [Concomitant]
  2. SIMVASTATIN [Concomitant]
  3. COUMADIN [Suspect]
     Indication: HERNIA HIATUS REPAIR
     Dosage: 5 MG 2 DAYS PER WEEK PO
     Route: 048
     Dates: start: 20050101, end: 20101030
  4. COUMADIN [Suspect]
     Indication: GALLBLADDER OPERATION
     Dosage: 5 MG 2 DAYS PER WEEK PO
     Route: 048
     Dates: start: 20050101, end: 20101030
  5. COUMADIN [Suspect]
     Indication: DEEP VEIN THROMBOSIS
     Dosage: 5 MG 2 DAYS PER WEEK PO
     Route: 048
     Dates: start: 20050101, end: 20101030
  6. COUMADIN [Suspect]
     Indication: ANKLE FRACTURE
     Dosage: 7.5 MG 5 DAYS PER WEEK PO
     Route: 048
     Dates: start: 20050101, end: 20101030
  7. COUMADIN [Suspect]
     Indication: DEEP VEIN THROMBOSIS
     Dosage: 7.5 MG 5 DAYS PER WEEK PO
     Route: 048
     Dates: start: 20050101, end: 20101030
  8. OMEPRAZOLE [Concomitant]

REACTIONS (1)
  - HAEMORRHAGIC STROKE [None]
